FAERS Safety Report 15015868 (Version 8)
Quarter: 2022Q1

REPORT INFORMATION
  Report Type: Report from Study
  Country: PL (occurrence: PL)
  Receive Date: 20180615
  Receipt Date: 20220317
  Transmission Date: 20220423
  Serious: Yes (Hospitalization, Other)
  Sender: FDA-Public Use
  Company Number: PL-AUROBINDO-AUR-APL-2018-027953

PATIENT
  Age: 48 Year
  Sex: Female

DRUGS (17)
  1. AMLODIPINE [Suspect]
     Active Substance: AMLODIPINE BESYLATE
     Indication: Hypertension
     Dosage: UNK
     Route: 065
  2. AMLODIPINE [Suspect]
     Active Substance: AMLODIPINE BESYLATE
     Dosage: 10 MILLIGRAM, ONCE A DAY (10 MG IN ONE DOSE OF THE MORNING)
     Route: 065
  3. BISOPROLOL [Suspect]
     Active Substance: BISOPROLOL
     Indication: Hypertension
     Dosage: 5 MILLIGRAM, UNK
     Route: 065
  4. METOPROLOL [Suspect]
     Active Substance: METOPROLOL
     Indication: Hypertension
     Dosage: 25 MILLIGRAM, ONCE A DAY (IN MORNING)
     Route: 048
  5. CAPTOPRIL [Suspect]
     Active Substance: CAPTOPRIL
     Indication: Hypertensive crisis
     Dosage: 25 MILLIGRAM (25 MG, SINGLE DOSE)
     Route: 060
  6. INDAPAMIDE [Suspect]
     Active Substance: INDAPAMIDE
     Indication: Hypertension
     Dosage: 5 MILLIGRAM, ONCE A DAY (5 MILLIGRAM DAILY; IN EVENING)
     Route: 048
  7. INDAPAMIDE [Suspect]
     Active Substance: INDAPAMIDE
     Dosage: 1.5 MILLIGRAM, ONCE A DAY(1.5 MG 1 X DAILY IN THE MORNING)
     Route: 048
  8. INDAPAMIDE [Suspect]
     Active Substance: INDAPAMIDE
     Dosage: 1.25 MILLIGRAM, ONCE A DAY AM (FIXED-DOSE COMBINATION)
     Route: 065
  9. LACIDIPINE [Suspect]
     Active Substance: LACIDIPINE
     Indication: Hypertension
     Dosage: 4 MILLIGRAM, ONCE A DAY (EVENING)
     Route: 048
  10. LACIDIPINE [Suspect]
     Active Substance: LACIDIPINE
     Dosage: 4 MILLIGRAM (INCREASE IN THE EVENING DOSE TO 4 MG)
     Route: 048
  11. LACIDIPINE [Suspect]
     Active Substance: LACIDIPINE
     Dosage: 4 MILLIGRAM, ONCE A DAY (2 MG, BID )
     Route: 048
  12. PERINDOPRIL ERBUMINE [Suspect]
     Active Substance: PERINDOPRIL ERBUMINE
     Indication: Hypertension
     Dosage: UNK
     Route: 065
  13. PERINDOPRIL ERBUMINE [Suspect]
     Active Substance: PERINDOPRIL ERBUMINE
     Dosage: 5 MILLIGRAM (5 MG, AM (FIXED-DOSE COMBINATION)
     Route: 065
  14. RAMIPRIL [Suspect]
     Active Substance: RAMIPRIL
     Indication: Hypertension
     Dosage: 5 MILLIGRAM, ONCE A DAY (IN THE EVENING)
     Route: 048
  15. FUROSEMIDE [Concomitant]
     Active Substance: FUROSEMIDE
     Indication: Hypertensive crisis
     Dosage: 20 MG, UNK
     Route: 042
  16. URAPIDIL [Concomitant]
     Active Substance: URAPIDIL
     Indication: Hypertensive crisis
     Dosage: UNK
     Route: 016
  17. URAPIDIL [Concomitant]
     Active Substance: URAPIDIL
     Dosage: UNK
     Route: 042

REACTIONS (9)
  - Treatment noncompliance [Unknown]
  - Treatment failure [Recovered/Resolved]
  - Blood pressure fluctuation [Recovering/Resolving]
  - Malaise [Recovering/Resolving]
  - Blood pressure increased [Recovering/Resolving]
  - Product dose omission issue [Unknown]
  - Therapeutic product effect incomplete [Recovered/Resolved]
  - Blood pressure decreased [Unknown]
  - Drug ineffective [Unknown]
